FAERS Safety Report 21012751 (Version 1)
Quarter: 2022Q2

REPORT INFORMATION
  Report Type: Spontaneous
  Country: JP (occurrence: JP)
  Receive Date: 20220627
  Receipt Date: 20220627
  Transmission Date: 20220721
  Serious: Yes (Other)
  Sender: FDA-Public Use
  Company Number: JP-ONO-2022JP016255

PATIENT

DRUGS (1)
  1. OPDIVO [Suspect]
     Active Substance: NIVOLUMAB
     Indication: Pleural mesothelioma malignant
     Dosage: 360 MG
     Route: 041

REACTIONS (3)
  - Immunoglobulin G4 related disease [Unknown]
  - Monoclonal immunoglobulin increased [Unknown]
  - Intentional product use issue [Unknown]
